FAERS Safety Report 8590699 (Version 3)
Quarter: 2012Q4

REPORT INFORMATION
  Report Type: 
  Country: US (occurrence: US)
  Receive Date: 20120601
  Receipt Date: 20120924
  Transmission Date: 20130627
  Serious: Yes (Hospitalization)
  Sender: FDA-Public Use
  Company Number: US-ALEXION PHARMACEUTICALS INC.-A201201040

PATIENT
  Age: 47 Year
  Sex: Female

DRUGS (6)
  1. SOLIRIS 300MG [Suspect]
     Indication: HAEMOLYTIC URAEMIC SYNDROME
     Dosage: 900 mg, q2w
     Route: 042
     Dates: end: 20120517
  2. AMLODIPINE [Concomitant]
     Dosage: UNK
  3. CARVEDILOL [Concomitant]
     Dosage: UNK
  4. DULOXETINE [Concomitant]
     Dosage: UNK
  5. PROTONIX [Concomitant]
     Dosage: UNK
  6. OXYCODONE [Concomitant]
     Dosage: UNK

REACTIONS (4)
  - Staphylococcal sepsis [Recovered/Resolved]
  - Acinetobacter bacteraemia [Recovering/Resolving]
  - Pain in extremity [Unknown]
  - Headache [Unknown]
